FAERS Safety Report 18725549 (Version 1)
Quarter: 2021Q1

REPORT INFORMATION
  Report Type: Spontaneous
  Country: PL (occurrence: PL)
  Receive Date: 20210111
  Receipt Date: 20210111
  Transmission Date: 20210419
  Serious: Yes (Other)
  Sender: FDA-Public Use
  Company Number: PL-PFIZER INC-2021009154

PATIENT
  Age: 46 Year
  Sex: Female
  Weight: 86 kg

DRUGS (2)
  1. SUTENT [Suspect]
     Active Substance: SUNITINIB MALATE
     Indication: RENAL CELL CARCINOMA
     Dosage: COURSE 1 AND 7?10
     Route: 048
  2. SUTENT [Suspect]
     Active Substance: SUNITINIB MALATE
     Dosage: COURSES 2?6, 11?28
     Route: 048

REACTIONS (17)
  - Hypothyroidism [Unknown]
  - Blood pressure increased [Unknown]
  - Localised oedema [Unknown]
  - Diarrhoea [Unknown]
  - Oedema peripheral [Unknown]
  - Hyperglycaemia [Unknown]
  - Anaemia [Unknown]
  - Chronic kidney disease [Unknown]
  - Palmar-plantar erythrodysaesthesia syndrome [Unknown]
  - Aspartate aminotransferase increased [Unknown]
  - Dyspepsia [Unknown]
  - Haemorrhage [Unknown]
  - Haemorrhoids [Unknown]
  - Alopecia [Unknown]
  - Pharyngitis [Unknown]
  - Weight increased [Unknown]
  - Vaginal haemorrhage [Unknown]
